FAERS Safety Report 23906094 (Version 1)
Quarter: 2024Q2

REPORT INFORMATION
  Report Type: Report from Study
  Country: PR (occurrence: PR)
  Receive Date: 20240527
  Receipt Date: 20240527
  Transmission Date: 20240715
  Serious: Yes (Death, Hospitalization)
  Sender: FDA-Public Use
  Company Number: PR-ABBVIE-5774484

PATIENT
  Age: 71 Year
  Sex: Male

DRUGS (1)
  1. HUMIRA [Suspect]
     Active Substance: ADALIMUMAB
     Indication: Rheumatoid arthritis
     Dosage: FORM STRENGTH: 40 MILLIGRAM?START DATE TEXT: AROUND 2010
     Route: 058
     Dates: start: 2010

REACTIONS (4)
  - Myocardial infarction [Fatal]
  - Dyspnoea [Unknown]
  - Pulmonary oedema [Unknown]
  - Chest pain [Unknown]

NARRATIVE: CASE EVENT DATE: 20231201
